FAERS Safety Report 19290032 (Version 1)
Quarter: 2021Q2

REPORT INFORMATION
  Report Type: Report from Study
  Country: CO (occurrence: CO)
  Receive Date: 20210522
  Receipt Date: 20210522
  Transmission Date: 20210717
  Serious: Yes (Hospitalization, Other)
  Sender: FDA-Public Use
  Company Number: NVSC2021CO101407

PATIENT
  Age: 36 Year
  Sex: Female
  Weight: 79 kg

DRUGS (3)
  1. LOSARTAN. [Suspect]
     Active Substance: LOSARTAN
     Indication: HYPERTENSION
     Dosage: 50 MG, QMO
     Route: 048
  2. XOLAIR [Suspect]
     Active Substance: OMALIZUMAB
     Indication: IDIOPATHIC URTICARIA
     Dosage: 300 MG, QMO
     Route: 058
     Dates: start: 20190501, end: 202012
  3. LEVOTREX [Concomitant]
     Indication: PRODUCT USED FOR UNKNOWN INDICATION
     Dosage: UNK UNK, UNKNOWN
     Route: 065

REACTIONS (8)
  - Fatigue [Recovering/Resolving]
  - Dyspnoea [Not Recovered/Not Resolved]
  - Oxygen saturation [Unknown]
  - Pain [Not Recovered/Not Resolved]
  - Diabetes mellitus [Unknown]
  - Urticaria [Not Recovered/Not Resolved]
  - COVID-19 pneumonia [Recovered/Resolved with Sequelae]
  - Malaise [Recovering/Resolving]

NARRATIVE: CASE EVENT DATE: 202002
